FAERS Safety Report 5709508-X (Version None)
Quarter: 2008Q2

REPORT INFORMATION
  Report Type: 
  Country: None (occurrence: None)
  Receive Date: 20080417
  Receipt Date: 20080417
  Transmission Date: 20081010
  Serious: Yes (Other)
  Sender: FDA-Public Use
  Company Number: None

PATIENT
  Age: 48 Year
  Sex: Female
  Weight: 113.3993 kg

DRUGS (1)
  1. WELLBUTRIN XL [Suspect]
     Indication: MAJOR DEPRESSION
     Dosage: 300 MGS QD
     Dates: start: 20070918, end: 20071118

REACTIONS (2)
  - CONDITION AGGRAVATED [None]
  - MOOD ALTERED [None]
